FAERS Safety Report 6405141-5 (Version None)
Quarter: 2009Q4

REPORT INFORMATION
  Report Type: 
  Country: None (occurrence: None)
  Receive Date: 20091019
  Receipt Date: 20091006
  Transmission Date: 20100525
  Serious: Yes (Other)
  Sender: FDA-Public Use
  Company Number: US-ABBOTT-09P-163-0600988-00

PATIENT
  Sex: Female
  Weight: 86.26 kg

DRUGS (3)
  1. SYNTHROID [Suspect]
     Indication: HYPOTHYROIDISM
     Dates: start: 19840101
  2. POTASSIUM CHLORIDE [Concomitant]
     Indication: FLUID RETENTION
  3. NORVASC [Concomitant]
     Indication: HYPERTENSION

REACTIONS (8)
  - DEHYDRATION [None]
  - HYPERTENSION [None]
  - LYMPHADENOPATHY [None]
  - NEOPLASM MALIGNANT [None]
  - SCLERODERMA [None]
  - SENSORY DISTURBANCE [None]
  - SYSTEMIC LUPUS ERYTHEMATOSUS [None]
  - WEIGHT INCREASED [None]
